FAERS Safety Report 24194253 (Version 3)
Quarter: 2024Q4

REPORT INFORMATION
  Report Type: Report from Study
  Country: JP (occurrence: JP)
  Receive Date: 20240809
  Receipt Date: 20241022
  Transmission Date: 20250114
  Serious: Yes (Death, Life-Threatening, Other)
  Sender: ROCHE
  Company Number: JP-CHUGAI-2024026763AA

PATIENT
  Age: 78 Year
  Sex: Female
  Weight: 45.75 kg

DRUGS (6)
  1. POLIVY [Suspect]
     Active Substance: POLATUZUMAB VEDOTIN-PIIQ
     Indication: Diffuse large B-cell lymphoma
     Dosage: 80 MILLIGRAM
     Route: 042
     Dates: start: 20230727, end: 20230727
  2. CYCLOPHOSPHAMIDE [Suspect]
     Active Substance: CYCLOPHOSPHAMIDE
     Indication: Diffuse large B-cell lymphoma
     Dosage: 760 MILLIGRAM
     Route: 042
     Dates: start: 20230727, end: 20230727
  3. DOXORUBICIN HYDROCHLORIDE [Suspect]
     Active Substance: DOXORUBICIN HYDROCHLORIDE
     Indication: Diffuse large B-cell lymphoma
     Dosage: 50 MILLIGRAM
     Route: 042
     Dates: start: 20230727, end: 20230727
  4. PREDNISOLONE [Suspect]
     Active Substance: PREDNISOLONE
     Indication: Diffuse large B-cell lymphoma
     Dosage: 100 MILLIGRAM
     Route: 050
     Dates: start: 20230727, end: 20230729
  5. SULFAMETHOXAZOLE\TRIMETHOPRIM [Concomitant]
     Active Substance: SULFAMETHOXAZOLE\TRIMETHOPRIM
     Dosage: 1 DOSAGE FORM, TIW
     Route: 050
  6. SULFAMETHOXAZOLE\TRIMETHOPRIM [Concomitant]
     Active Substance: SULFAMETHOXAZOLE\TRIMETHOPRIM
     Dosage: 1 DOSAGE FORM, TIW
     Route: 050

REACTIONS (4)
  - Small intestinal perforation [Recovering/Resolving]
  - Peritonitis [Unknown]
  - Abscess [Unknown]
  - Diffuse large B-cell lymphoma [Fatal]

NARRATIVE: CASE EVENT DATE: 20230729
